FAERS Safety Report 6847472-0 (Version None)
Quarter: 2010Q3

REPORT INFORMATION
  Report Type: 
  Country: None (occurrence: None)
  Receive Date: 20100716
  Receipt Date: 20100712
  Transmission Date: 20110219
  Serious: Yes (Hospitalization)
  Sender: FDA-Public Use
  Company Number: BR-PFIZER INC-2010071690

PATIENT
  Age: 52 Year
  Sex: Male
  Weight: 85.714 kg

DRUGS (13)
  1. SUNITINIB MALATE [Suspect]
     Indication: METASTATIC RENAL CELL CARCINOMA
     Dosage: 50 MG, DAILY, EVERY DAY
     Route: 048
     Dates: start: 20061219, end: 20100616
  2. SUNITINIB MALATE [Suspect]
     Dosage: 50 MG, 1X/DAY
     Route: 048
     Dates: start: 20100708
  3. SIMVASTATIN [Concomitant]
     Dosage: UNK
     Route: 048
     Dates: start: 19970615
  4. CIPROFIBRATE [Concomitant]
     Dosage: UNK
     Route: 048
     Dates: start: 19970615
  5. EZETIMIBE [Concomitant]
     Dosage: UNK
     Route: 048
     Dates: start: 19970615
  6. METFORMIN [Concomitant]
     Dosage: UNK
     Route: 048
     Dates: start: 19970615
  7. LEVOTHYROXINE [Concomitant]
     Dosage: UNK
     Route: 048
     Dates: start: 20070930
  8. OMEPRAZOLE [Concomitant]
     Dosage: UNK
     Route: 048
     Dates: start: 20070215
  9. PARACETAMOL [Concomitant]
     Dosage: UNK
     Route: 048
     Dates: start: 20070127
  10. ACETYLSALICYLIC ACID [Concomitant]
     Dosage: UNK
     Route: 048
     Dates: start: 20071009
  11. GLICLAZIDE [Concomitant]
     Dosage: UNK
     Route: 048
     Dates: start: 20100428
  12. GLIMEPIRIDE [Concomitant]
     Dosage: UNK
     Dates: start: 19970615, end: 20100428
  13. IRBESARTAN [Concomitant]
     Dosage: UNK
     Dates: start: 20090827, end: 20100330

REACTIONS (1)
  - ANAL ABSCESS [None]
